FAERS Safety Report 24092148 (Version 3)
Quarter: 2024Q3

REPORT INFORMATION
  Report Type: Spontaneous
  Country: RU (occurrence: RU)
  Receive Date: 20240715
  Receipt Date: 20240911
  Transmission Date: 20241016
  Serious: Yes (Hospitalization, Other)
  Sender: NOVARTIS
  Company Number: RU-002147023-NVSC2024RU143818

PATIENT

DRUGS (2)
  1. DABRAFENIB [Suspect]
     Active Substance: DABRAFENIB
     Indication: Product used for unknown indication
     Dosage: 75 MG, BID (120, 2 TABLETS, CONSTANTLY FOR A LONG TIME)
     Route: 065
     Dates: start: 20231124
  2. TRAMETINIB [Suspect]
     Active Substance: TRAMETINIB
     Indication: Product used for unknown indication
     Dosage: 2 MG, QD (30)
     Route: 065
     Dates: start: 20231124

REACTIONS (2)
  - Nephritis [Recovering/Resolving]
  - Blood creatinine decreased [Recovering/Resolving]

NARRATIVE: CASE EVENT DATE: 20240415
